FAERS Safety Report 5626008-6 (Version None)
Quarter: 2008Q1

REPORT INFORMATION
  Report Type: 
  Country: None (occurrence: None)
  Receive Date: 20080214
  Receipt Date: 20080204
  Transmission Date: 20080703
  Serious: Yes (Other)
  Sender: FDA-Public Use
  Company Number: PHNU2008BG00850

PATIENT
  Age: 56 Year
  Sex: Female

DRUGS (1)
  1. ACLASTA [Suspect]
     Indication: OSTEOPOROSIS
     Dosage: 5 MG, ONCE/SINGLE
     Route: 042
     Dates: start: 20071215, end: 20071215

REACTIONS (5)
  - ARTHRALGIA [None]
  - CIRCULATORY COLLAPSE [None]
  - HYPERTHERMIA [None]
  - PYREXIA [None]
  - VOMITING [None]
